FAERS Safety Report 9295475 (Version 2)
Quarter: 2013Q3

REPORT INFORMATION
  Report Type: Spontaneous
  Country: CL (occurrence: CL)
  Receive Date: 20130517
  Receipt Date: 20130701
  Transmission Date: 20140515
  Serious: Yes (Other)
  Sender: FDA-Public Use
  Company Number: CL-BRISTOL-MYERS SQUIBB COMPANY-18896217

PATIENT
  Sex: 0

DRUGS (1)
  1. YERVOY [Suspect]

REACTIONS (1)
  - Hepatic encephalopathy [Unknown]
